FAERS Safety Report 8355454-5 (Version None)
Quarter: 2012Q2

REPORT INFORMATION
  Report Type: 
  Country: None (occurrence: None)
  Receive Date: 20120511
  Receipt Date: 20120504
  Transmission Date: 20120825
  Serious: Yes (Life-Threatening)
  Sender: FDA-Public Use
  Company Number: US-ROXANE LABORATORIES, INC.-2012-RO-01188RO

PATIENT
  Age: 22 Year
  Sex: Female

DRUGS (4)
  1. TYLENOL (CAPLET) [Concomitant]
     Indication: PYREXIA
  2. MORPHINE [Concomitant]
     Indication: PAIN
  3. LEVETIRACETAM [Suspect]
     Indication: CONVULSION
  4. DILANTIN [Suspect]
     Indication: CONVULSION

REACTIONS (1)
  - DRUG RASH WITH EOSINOPHILIA AND SYSTEMIC SYMPTOMS [None]
